FAERS Safety Report 11221116 (Version 1)
Quarter: 2015Q2

REPORT INFORMATION
  Report Type: Spontaneous
  Country: US (occurrence: None)
  Receive Date: 20150625
  Receipt Date: 20150625
  Transmission Date: 20150821
  Serious: Yes (Life-Threatening, Hospitalization, Disabling, Other)
  Sender: FDA-Public Use
  Company Number: None

PATIENT
  Age: 38 Year
  Sex: Female
  Weight: 90.72 kg

DRUGS (5)
  1. ESSURE [Suspect]
     Active Substance: DEVICE
  2. IRON GLYCINATE [Concomitant]
  3. ESSURE [Concomitant]
     Active Substance: DEVICE
  4. DILANTIN [Concomitant]
     Active Substance: PHENYTOIN
  5. NORTREL [Concomitant]
     Active Substance: ETHINYL ESTRADIOL\NORETHINDRONE

REACTIONS (8)
  - Abdominal tenderness [None]
  - Syncope [None]
  - Menorrhagia [None]
  - Asthenia [None]
  - Thrombosis [None]
  - Abdominal pain [None]
  - Headache [None]
  - Generalised tonic-clonic seizure [None]

NARRATIVE: CASE EVENT DATE: 20120615
